FAERS Safety Report 9813244 (Version 2)
Quarter: 2014Q1

REPORT INFORMATION
  Report Type: Spontaneous
  Country: US (occurrence: US)
  Receive Date: 20140113
  Receipt Date: 20140124
  Transmission Date: 20141002
  Serious: Yes (Other)
  Sender: FDA-Public Use
  Company Number: US-BAXTER-2014BAX001303

PATIENT
  Age: 34 Year
  Sex: Female

DRUGS (4)
  1. DIANEAL LOW CALCIUM [Suspect]
     Indication: PERITONEAL DIALYSIS
     Route: 033
     Dates: start: 201307, end: 20131224
  2. DIANEAL LOW CALCIUM [Suspect]
     Route: 033
     Dates: start: 20140114
  3. DIANEAL LOW CALCIUM [Suspect]
     Indication: PERITONEAL DIALYSIS
     Route: 033
     Dates: start: 201307, end: 20131224
  4. DIANEAL LOW CALCIUM [Suspect]
     Route: 033
     Dates: start: 20140114

REACTIONS (1)
  - Hernia [Recovered/Resolved]
